FAERS Safety Report 6937599-7 (Version None)
Quarter: 2010Q3

REPORT INFORMATION
  Report Type: 
  Country: None (occurrence: None)
  Receive Date: 20100823
  Receipt Date: 20100823
  Transmission Date: 20110219
  Serious: Yes (Other)
  Sender: FDA-Public Use
  Company Number: None

PATIENT
  Sex: Female
  Weight: 84.369 kg

DRUGS (1)
  1. ALLERX 30 DOSE PACK 60'S CORNERSTONE THERAPEUTICS [Suspect]
     Indication: RHINITIS ALLERGIC
     Dosage: 1 YELLOW TAB MORN. 1 BLUE EVEN 1X DAILY PO
     Route: 048
     Dates: start: 20100501, end: 20100516

REACTIONS (8)
  - ABDOMINAL DISCOMFORT [None]
  - CHOKING SENSATION [None]
  - HEART RATE INCREASED [None]
  - HYPOPHAGIA [None]
  - PHOTOSENSITIVITY REACTION [None]
  - RASH ERYTHEMATOUS [None]
  - RASH PRURITIC [None]
  - SKIN BURNING SENSATION [None]
